FAERS Safety Report 4449966-4 (Version None)
Quarter: 2004Q3

REPORT INFORMATION
  Report Type: 
  Country: None (occurrence: None)
  Receive Date: 20040915
  Receipt Date: 20040826
  Transmission Date: 20050211
  Serious: Yes (Other)
  Sender: FDA-Public Use
  Company Number: PHEH2004US09285

PATIENT
  Age: 69 Year
  Sex: Male

DRUGS (2)
  1. ZOMETA [Suspect]
     Indication: PROSTATE CANCER METASTATIC
     Dosage: INFUSION MONTHLY (DOSE UNKNOWN)
     Route: 042
     Dates: start: 20020201, end: 20040601
  2. CHEMOTHERAPEUTICS,OTHER [Concomitant]

REACTIONS (8)
  - BONE DISORDER [None]
  - EATING DISORDER [None]
  - GINGIVAL DISORDER [None]
  - IMPAIRED HEALING [None]
  - LUNG NEOPLASM MALIGNANT [None]
  - OSTEONECROSIS [None]
  - PAIN IN JAW [None]
  - TOOTH EXTRACTION [None]
